FAERS Safety Report 20830357 (Version 1)
Quarter: 2022Q2

REPORT INFORMATION
  Report Type: Spontaneous
  Country: US (occurrence: US)
  Receive Date: 20220514
  Receipt Date: 20220514
  Transmission Date: 20220721
  Serious: No
  Sender: FDA-Public Use
  Company Number: US-BRISTOL-MYERS SQUIBB COMPANY-2022-025323

PATIENT
  Age: 69 Year
  Sex: Male

DRUGS (1)
  1. REVLIMID [Suspect]
     Active Substance: LENALIDOMIDE
     Indication: Plasma cell myeloma
     Dosage: TAKE 1 CAPSULE BY MOUTH AT THE SAME TIME EVERY DAY, WITH OR WITHOUT FOOD. DO NOT CRUSH OR CHEW.
     Route: 048
     Dates: start: 20220224

REACTIONS (2)
  - White blood cell count decreased [Unknown]
  - Fatigue [Unknown]
